FAERS Safety Report 21472551 (Version 1)
Quarter: 2022Q4

REPORT INFORMATION
  Report Type: Spontaneous
  Country: US (occurrence: US)
  Receive Date: 20221018
  Receipt Date: 20221018
  Transmission Date: 20230113
  Serious: Yes (Other)
  Sender: FDA-Public Use
  Company Number: US-PFIZER INC-2020227338

PATIENT
  Age: 69 Year
  Sex: Male
  Weight: 96.2 kg

DRUGS (2)
  1. RAPAMUNE [Suspect]
     Active Substance: SIROLIMUS
     Indication: Liver transplant
     Dosage: 2 MG, 1X/DAY( TWO PILLS ONCE A DAY BY MOUTH)
     Route: 048
  2. RAPAMUNE [Suspect]
     Active Substance: SIROLIMUS
     Dosage: 2 MG, 1X/DAY (1MG TABLET, TAKES 2 TABLETS IN THE MORNING FOR A TOTAL DOSE OF 2MG)
     Route: 048

REACTIONS (8)
  - Neuropathy peripheral [Not Recovered/Not Resolved]
  - Product use in unapproved indication [Unknown]
  - Off label use [Unknown]
  - Neuralgia [Unknown]
  - Gait disturbance [Unknown]
  - Angiopathy [Unknown]
  - Osteoporosis [Unknown]
  - Arthralgia [Unknown]
